FAERS Safety Report 8842749 (Version 2)
Quarter: 2012Q4

REPORT INFORMATION
  Report Type: 
  Country: US (occurrence: US)
  Receive Date: 20121016
  Receipt Date: 20121101
  Transmission Date: 20130627
  Serious: No
  Sender: FDA-Public Use
  Company Number: US-ASTRAZENECA-2012SE76606

PATIENT
  Age: 43 Year
  Sex: Female

DRUGS (3)
  1. PULMICORT TURBUHALER [Suspect]
     Route: 055
  2. ALBUTEROL [Suspect]
     Route: 065
  3. SYMBICORT PMDI [Suspect]
     Dosage: 160/4.5 MCG TWO TIMES A DAY
     Route: 055

REACTIONS (6)
  - Bronchitis [Unknown]
  - Hypertension [Unknown]
  - Infection [Unknown]
  - Inflammation [Unknown]
  - Dizziness [Unknown]
  - Drug ineffective [Unknown]
